FAERS Safety Report 5752415-7 (Version None)
Quarter: 2008Q2

REPORT INFORMATION
  Report Type: 
  Country: None (occurrence: None)
  Receive Date: 20080529
  Receipt Date: 20080523
  Transmission Date: 20081010
  Serious: Yes (Hospitalization)
  Sender: FDA-Public Use
  Company Number: B0513758A

PATIENT
  Age: 93 Year
  Sex: Female
  Weight: 44 kg

DRUGS (5)
  1. VALTREX [Suspect]
     Indication: HERPES ZOSTER
     Dosage: 1000MG THREE TIMES PER DAY
     Route: 048
     Dates: start: 20080312, end: 20080318
  2. NORVASC [Concomitant]
     Indication: HYPERTENSION
     Dosage: 2.5MG PER DAY
     Route: 048
  3. GLAKAY [Concomitant]
     Indication: OSTEOPOROSIS
     Dosage: 45MG PER DAY
     Route: 048
  4. JUVELA N [Concomitant]
     Indication: ARTERIOSCLEROSIS
     Dosage: 600MG UNKNOWN
     Route: 048
  5. EPADEL [Concomitant]
     Indication: ARTERIOSCLEROSIS
     Dosage: 1800MG UNKNOWN
     Route: 048

REACTIONS (5)
  - DIZZINESS [None]
  - MALAISE [None]
  - NEPHROPATHY [None]
  - NERVOUS SYSTEM DISORDER [None]
  - RENAL FAILURE ACUTE [None]
